FAERS Safety Report 17912424 (Version 1)
Quarter: 2020Q2

REPORT INFORMATION
  Report Type: Spontaneous
  Country: US (occurrence: US)
  Receive Date: 20200618
  Receipt Date: 20200618
  Transmission Date: 20200714
  Serious: No
  Sender: FDA-Public Use
  Company Number: US-BEH-2020118397

PATIENT
  Age: 56 Year
  Sex: Male

DRUGS (3)
  1. BENADRYL [Concomitant]
     Active Substance: DIPHENHYDRAMINE HYDROCHLORIDE
  2. TYLENOL [Concomitant]
     Active Substance: ACETAMINOPHEN
  3. HIZENTRA [Suspect]
     Active Substance: HUMAN IMMUNOGLOBULIN G
     Indication: BRONCHIECTASIS
     Dosage: 10 GRAM, QW
     Route: 058
     Dates: start: 20191015

REACTIONS (4)
  - Infusion site pain [Unknown]
  - No adverse event [Unknown]
  - Infusion site pruritus [Unknown]
  - Product use in unapproved indication [Unknown]
